FAERS Safety Report 9826847 (Version 1)
Quarter: 2014Q1

REPORT INFORMATION
  Report Type: Spontaneous
  Country: US (occurrence: US)
  Receive Date: 20140117
  Receipt Date: 20140117
  Transmission Date: 20141002
  Serious: No
  Sender: FDA-Public Use
  Company Number: US-GLAXOSMITHKLINE-A1006605A

PATIENT
  Age: 53 Year
  Sex: Male

DRUGS (7)
  1. PROMACTA [Suspect]
     Indication: THROMBOCYTOPENIA
     Dosage: 12.5MG PER DAY
     Route: 048
     Dates: start: 20121116
  2. INCIVEK [Concomitant]
  3. RIBAVIRIN [Concomitant]
  4. FENOFIBRATE [Concomitant]
  5. GLIMEPIRIDE [Concomitant]
  6. LEVOTHYROXINE [Concomitant]
  7. PEGASYS [Concomitant]

REACTIONS (1)
  - Nausea [Recovered/Resolved]
